FAERS Safety Report 11726926 (Version 1)
Quarter: 2015Q4

REPORT INFORMATION
  Report Type: Spontaneous
  Country: GB (occurrence: GB)
  Receive Date: 20151112
  Receipt Date: 20151112
  Transmission Date: 20160304
  Serious: Yes (Other)
  Sender: FDA-Public Use
  Company Number: GB-WATSON-2015-23820

PATIENT
  Age: 50 Year
  Sex: Female
  Weight: 55 kg

DRUGS (3)
  1. CELECOXIB (UNKNOWN) [Suspect]
     Active Substance: CELECOXIB
     Indication: TENDONITIS
     Dosage: 200 MG, DAILY
     Route: 048
     Dates: start: 20150825, end: 20150826
  2. IBUPROFEN. [Concomitant]
     Active Substance: IBUPROFEN
     Indication: PRODUCT USED FOR UNKNOWN INDICATION
     Dosage: UNK
     Route: 065
  3. PREMPAK [Concomitant]
     Active Substance: ESTROGENS, CONJUGATED\NORGESTREL
     Indication: PRODUCT USED FOR UNKNOWN INDICATION
     Dosage: UNK
     Route: 065

REACTIONS (2)
  - Pain [Recovered/Resolved]
  - Rash pruritic [Recovered/Resolved]

NARRATIVE: CASE EVENT DATE: 20150826
